FAERS Safety Report 5916962-7 (Version None)
Quarter: 2008Q4

REPORT INFORMATION
  Report Type: 
  Country: None (occurrence: None)
  Receive Date: 20081013
  Receipt Date: 20081009
  Transmission Date: 20090506
  Serious: Yes (Life-Threatening)
  Sender: FDA-Public Use
  Company Number: JP-ASTRAZENECA-2008AP07508

PATIENT
  Age: 60 Year
  Sex: Male
  Weight: 77 kg

DRUGS (4)
  1. DIPRIVAN [Suspect]
     Indication: INDUCTION OF ANAESTHESIA
     Route: 042
     Dates: start: 20080922, end: 20080922
  2. MUSCULAX [Suspect]
     Indication: HYPOTONIA
     Route: 042
     Dates: start: 20080922, end: 20080922
  3. VEEN-F [Suspect]
     Route: 042
     Dates: start: 20080922, end: 20080922
  4. ANTIBIOTIC PREPARATIONS [Suspect]
     Dosage: DOSE UNKNOWN
     Route: 042
     Dates: start: 20080922, end: 20080922

REACTIONS (2)
  - ANAPHYLACTIC SHOCK [None]
  - CARDIAC ARREST [None]
